FAERS Safety Report 7004795-2 (Version None)
Quarter: 2010Q3

REPORT INFORMATION
  Report Type: 
  Country: None (occurrence: None)
  Receive Date: 20100917
  Receipt Date: 20100831
  Transmission Date: 20110219
  Serious: Yes (Death, Other)
  Sender: FDA-Public Use
  Company Number: FKO201000373

PATIENT
  Age: 85 Year
  Sex: Male

DRUGS (4)
  1. DOXORUBICIN (MANUFACTURER UNKNOWN) (DOXORUBICIN HYDROCHLORIDE) (DOXORU [Suspect]
     Indication: LYMPHOMA
     Dosage: (35 MG/M2)
  2. VINCRISTINE [Concomitant]
  3. CYCLOPHOSPHAMIDE [Concomitant]
  4. PREDNISOLONE [Concomitant]

REACTIONS (11)
  - BONE MARROW FAILURE [None]
  - EROSIVE OESOPHAGITIS [None]
  - FEBRILE NEUTROPENIA [None]
  - GASTRITIS EROSIVE [None]
  - GASTROINTESTINAL MUCOSAL DISORDER [None]
  - GENERAL PHYSICAL HEALTH DETERIORATION [None]
  - HAEMATOCHEZIA [None]
  - HEPATIC FAILURE [None]
  - HYPOVOLAEMIC SHOCK [None]
  - IMPAIRED GASTRIC EMPTYING [None]
  - NO THERAPEUTIC RESPONSE [None]
